FAERS Safety Report 13662158 (Version 2)
Quarter: 2017Q3

REPORT INFORMATION
  Report Type: Spontaneous
  Country: US (occurrence: US)
  Receive Date: 20170616
  Receipt Date: 20170814
  Transmission Date: 20171127
  Serious: Yes (Hospitalization)
  Sender: FDA-Public Use
  Company Number: US-ALLERGAN-1724755US

PATIENT
  Age: 46 Year
  Sex: Female

DRUGS (3)
  1. ZYRTEC [Concomitant]
     Active Substance: CETIRIZINE HYDROCHLORIDE
     Indication: HYPERSENSITIVITY
     Dosage: UNK, UNKNOWN
     Route: 048
  2. LO LOESTRIN FE [Suspect]
     Active Substance: ETHINYL ESTRADIOL\NORETHINDRONE ACETATE
     Indication: CONTRACEPTION
     Dosage: 1 DF, QD
     Route: 048
     Dates: end: 200611
  3. SINGULAIR [Concomitant]
     Active Substance: MONTELUKAST SODIUM
     Indication: HYPERSENSITIVITY
     Dosage: UNK, UNKNOWN
     Route: 048

REACTIONS (5)
  - Abdominal pain upper [Recovered/Resolved]
  - Gastrointestinal infection [Recovered/Resolved]
  - Embolism venous [Recovered/Resolved]
  - Inappropriate schedule of drug administration [Unknown]
  - Gastrointestinal necrosis [Recovered/Resolved]

NARRATIVE: CASE EVENT DATE: 201611
